FAERS Safety Report 26064902 (Version 3)
Quarter: 2025Q4

REPORT INFORMATION
  Report Type: Report from Study
  Country: EU (occurrence: EU)
  Receive Date: 20251119
  Receipt Date: 20251210
  Transmission Date: 20260117
  Serious: Yes (Hospitalization)
  Sender: ABBVIE
  Company Number: EU-ABBVIE-6553642

PATIENT
  Age: 64 Year
  Sex: Female

DRUGS (3)
  1. FOSCARBIDOPA\FOSLEVODOPA [Suspect]
     Active Substance: FOSCARBIDOPA\FOSLEVODOPA
     Indication: Parkinson^s disease
     Dosage: 240MG/ML FOSLEVODOPA + 12 MG/ML FOSCARBIDOPA, DOSES: HIGH 0.36ML/H BASE 0.29 ML/H; LOW 0.20ML/H
     Route: 058
     Dates: start: 20250714, end: 2025
  2. FOSCARBIDOPA\FOSLEVODOPA [Suspect]
     Active Substance: FOSCARBIDOPA\FOSLEVODOPA
     Dosage: 240MG/ML FOSLEVODOPA + 12 MG/ML FOSCARBIDOPA,DOSES: LOADING 1.4ML; DISCHARGE 0.45 ML/H; BASE 0.40...
     Route: 058
     Dates: start: 2025, end: 20251110
  3. FOSCARBIDOPA\FOSLEVODOPA [Suspect]
     Active Substance: FOSCARBIDOPA\FOSLEVODOPA
     Dosage: 240MG/ML FOSLEVODOPA + 12 MG/ML FOSCARBIDOPA,DOSES: LOADING ?1.4ML; HIGH 0.50 ML/H; BASE 0.45ML/H...
     Route: 058
     Dates: start: 20251110

REACTIONS (4)
  - Pneumonia [Recovered/Resolved]
  - Urinary tract infection [Recovered/Resolved]
  - Back pain [Recovered/Resolved]
  - Weight decreased [Not Recovered/Not Resolved]

NARRATIVE: CASE EVENT DATE: 20251101
